FAERS Safety Report 15290286 (Version 1)
Quarter: 2018Q3

REPORT INFORMATION
  Report Type: Not Available
  Country: FR (occurrence: FR)
  Receive Date: 20180817
  Receipt Date: 20180817
  Transmission Date: 20181010
  Serious: Yes (Hospitalization)
  Sender: FDA-Public Use
  Company Number: FR-CELGENEUS-FRA-20180803381

PATIENT
  Age: 58 Year
  Sex: Male
  Weight: 64 kg

DRUGS (2)
  1. GEMCITABINE SANDOZ [Concomitant]
     Indication: PANCREATIC CARCINOMA
     Route: 041
     Dates: start: 20180401, end: 20180801
  2. ABRAXANE [Suspect]
     Active Substance: PACLITAXEL
     Indication: PANCREATIC CARCINOMA
     Route: 041
     Dates: start: 20180401, end: 20180801

REACTIONS (1)
  - Scleroderma-like reaction [Recovering/Resolving]

NARRATIVE: CASE EVENT DATE: 20180730
